FAERS Safety Report 10531715 (Version 1)
Quarter: 2014Q4

REPORT INFORMATION
  Report Type: Spontaneous
  Country: US (occurrence: US)
  Receive Date: 20141021
  Receipt Date: 20141021
  Transmission Date: 20150529
  Serious: Yes (Hospitalization, Disabling, Other)
  Sender: FDA-Public Use
  Company Number: US-ELI_LILLY_AND_COMPANY-US201410004867

PATIENT
  Sex: Male

DRUGS (6)
  1. LEVOTHYROXINE [Concomitant]
     Active Substance: LEVOTHYROXINE
  2. HUMALOG [Suspect]
     Active Substance: INSULIN LISPRO
     Indication: TYPE 2 DIABETES MELLITUS
     Dosage: 20 U, TID
     Route: 065
     Dates: start: 1999
  3. HUMALOG [Suspect]
     Active Substance: INSULIN LISPRO
     Dosage: 20 U, QD MIDDAY
     Route: 065
  4. LANTUS [Concomitant]
     Active Substance: INSULIN GLARGINE
  5. WARFARIN [Concomitant]
     Active Substance: WARFARIN
  6. HUMALOG [Suspect]
     Active Substance: INSULIN LISPRO
     Dosage: 32 U, BID
     Route: 065

REACTIONS (7)
  - Back disorder [Unknown]
  - Visual acuity reduced [Unknown]
  - Cardiac failure congestive [Recovered/Resolved]
  - Blood glucose increased [Unknown]
  - Cardiac disorder [Unknown]
  - Foot fracture [Recovered/Resolved]
  - Neuropathy peripheral [Unknown]

NARRATIVE: CASE EVENT DATE: 2000
